FAERS Safety Report 6894770-0 (Version None)
Quarter: 2010Q3

REPORT INFORMATION
  Report Type: 
  Country: None (occurrence: None)
  Receive Date: 20100730
  Receipt Date: 20100730
  Transmission Date: 20110219
  Serious: Yes (Hospitalization, Other)
  Sender: FDA-Public Use
  Company Number: None

PATIENT
  Sex: Female
  Weight: 69.8539 kg

DRUGS (2)
  1. NIASPAN [Suspect]
     Indication: HYPERLIPIDAEMIA
     Dosage: NIASPAN 500MG 1@ HS ORAL
     Route: 048
     Dates: start: 20100712
  2. NIASPAN [Suspect]
     Indication: HYPERLIPIDAEMIA
     Dosage: NIASPAN 500MG 1@ HS ORAL
     Route: 048
     Dates: start: 20100713

REACTIONS (6)
  - FALL [None]
  - JAW FRACTURE [None]
  - LOSS OF CONSCIOUSNESS [None]
  - PRURITUS [None]
  - SKIN WARM [None]
  - SYNCOPE [None]
